FAERS Safety Report 7275421-2 (Version None)
Quarter: 2011Q1

REPORT INFORMATION
  Report Type: 
  Country: None (occurrence: None)
  Receive Date: 20110204
  Receipt Date: 20110125
  Transmission Date: 20110831
  Serious: Yes (Hospitalization)
  Sender: FDA-Public Use
  Company Number: DE-ELI_LILLY_AND_COMPANY-DE201101006077

PATIENT
  Sex: Male
  Weight: 94 kg

DRUGS (12)
  1. PEMETREXED [Suspect]
     Indication: NON-SMALL CELL LUNG CANCER
     Dosage: 1000 MG, OTHER
     Route: 042
     Dates: start: 20101130
  2. ESCITALOPRAM [Concomitant]
     Indication: ANXIETY DISORDER
     Dosage: 20 MG, UNK
     Dates: start: 20101130
  3. CISPLATIN [Suspect]
     Indication: NON-SMALL CELL LUNG CANCER
     Dosage: 150 MG, OTHER
     Route: 042
     Dates: start: 20101130
  4. ACETYLSALICYLIC ACID SRT [Concomitant]
     Indication: PERIPHERAL ARTERIAL OCCLUSIVE DISEASE
     Dosage: 300 MG, UNK
     Dates: start: 20101130
  5. LERCANIDIPINE [Concomitant]
     Indication: HYPERTENSION
     Dosage: 20 MG, UNK
     Dates: start: 20101129
  6. PANTOPRAZOL [Concomitant]
     Dates: start: 20101130
  7. NECITUMUMAB (11F8) (LY3012211) [Suspect]
     Indication: NON-SMALL CELL LUNG CANCER
     Dosage: 800 MG, OTHER
     Route: 042
     Dates: start: 20101130
  8. CRESTOR [Concomitant]
     Dosage: 10 MG, UNK
     Dates: start: 20101130
  9. VALSARTAN [Concomitant]
     Indication: HYPERTENSION
     Dates: start: 20101130
  10. NICOTINAM. W/PYRIDOXI. HCL/RIBOFL./THIAM. HCL [Concomitant]
     Indication: HYPERCHOLESTEROLAEMIA
  11. TRAMADOL HCL [Concomitant]
     Indication: PAIN
     Dosage: 200 MG, UNK
     Dates: start: 20101129
  12. CLOPIDOGREL SULFATE [Concomitant]
     Indication: CEREBROVASCULAR ACCIDENT
     Dates: start: 20101130

REACTIONS (1)
  - HYPERURICAEMIA [None]
